FAERS Safety Report 7478071-8 (Version None)
Quarter: 2011Q2

REPORT INFORMATION
  Report Type: 
  Country: None (occurrence: None)
  Receive Date: 20110513
  Receipt Date: 20110502
  Transmission Date: 20111010
  Serious: Yes (Other)
  Sender: FDA-Public Use
  Company Number: US-BAYER-200922777NA

PATIENT
  Age: 46 Year
  Sex: Female

DRUGS (6)
  1. BETASERON [Suspect]
     Dosage: 8 MIU, QOD
     Route: 058
     Dates: start: 20090505, end: 20100412
  2. HYDROCODONE [HYDROCODONE] [Concomitant]
     Dosage: 7.5 MG, Q4HR
  3. BETASERON [Suspect]
     Route: 058
     Dates: start: 20080808, end: 20090302
  4. VISTARIL [HYDROXYZINE HYDROCHLORIDE] [Concomitant]
     Indication: ANXIETY
     Dosage: UNK UNK, TID
  5. BETASERON [Suspect]
     Indication: RELAPSING-REMITTING MULTIPLE SCLEROSIS
     Dosage: UNK
     Route: 058
     Dates: start: 20050325
  6. BETASERON [Suspect]
     Dosage: 4 MIU, QOD
     Route: 058
     Dates: start: 20110408

REACTIONS (11)
  - HYPOAESTHESIA [None]
  - HEADACHE [None]
  - FALL [None]
  - CONCUSSION [None]
  - TREMOR [None]
  - VOMITING [None]
  - INTERVERTEBRAL DISC PROTRUSION [None]
  - DIZZINESS [None]
  - LOSS OF CONSCIOUSNESS [None]
  - HEAD INJURY [None]
  - EPISTAXIS [None]
